FAERS Safety Report 10376899 (Version 2)
Quarter: 2014Q3

REPORT INFORMATION
  Report Type: Spontaneous
  Country: IT (occurrence: IT)
  Receive Date: 20140811
  Receipt Date: 20140813
  Transmission Date: 20150326
  Serious: Yes (Hospitalization)
  Sender: FDA-Public Use
  Company Number: IT-009507513-1408ITA005297

PATIENT
  Age: 70 Year
  Sex: Male

DRUGS (10)
  1. PANTOPRAZOLE [Concomitant]
     Active Substance: PANTOPRAZOLE SODIUM
     Dosage: UNK
     Route: 048
  2. OMNIC [Concomitant]
     Active Substance: TAMSULOSIN HYDROCHLORIDE
     Dosage: UNK
     Route: 048
  3. LANTUS [Concomitant]
     Active Substance: INSULIN GLARGINE
     Dosage: UNK
     Route: 058
  4. TOTALIP [Concomitant]
     Active Substance: ATORVASTATIN
     Dosage: UNK
     Route: 048
  5. ROCALTROL [Concomitant]
     Active Substance: CALCITRIOL
     Dosage: UNK
     Route: 048
  6. CARDIRENE [Suspect]
     Active Substance: ASPIRIN DL-LYSINE
     Indication: PROPHYLAXIS
     Dosage: 1 DOSE (UNIT) DAILY
     Route: 048
     Dates: start: 20140101, end: 20140408
  7. PANTOPRAZOLE [Concomitant]
     Active Substance: PANTOPRAZOLE SODIUM
     Dosage: UNK
     Route: 048
  8. KAYEXALATE [Concomitant]
     Active Substance: SODIUM POLYSTYRENE SULFONATE
     Dosage: UNK
     Route: 048
  9. LORTAAN 12,5 MG COMPRESSE RIVESTITE CON FILM [Suspect]
     Active Substance: LOSARTAN POTASSIUM
     Indication: HYPERTENSION
     Dosage: 1 DOSE (UNIT) DAILY
     Route: 048
     Dates: start: 20140101, end: 20140408
  10. NORVASC [Suspect]
     Active Substance: AMLODIPINE BESYLATE
     Indication: HYPERTENSION
     Dosage: 1 DOSE (UNIT) DAILY
     Route: 048
     Dates: start: 20140101, end: 20140408

REACTIONS (4)
  - Hypertension [Unknown]
  - Headache [Unknown]
  - Epistaxis [Unknown]
  - Drug interaction [None]

NARRATIVE: CASE EVENT DATE: 20140408
